FAERS Safety Report 5484312-9 (Version None)
Quarter: 2007Q4

REPORT INFORMATION
  Report Type: 
  Country: None (occurrence: None)
  Receive Date: 20071012
  Receipt Date: 20070930
  Transmission Date: 20080405
  Serious: No
  Sender: FDA-Public Use
  Company Number: US-BOEHRINGER INGELHEIM PHARMACEUTICALS, INC.-2007-BP-18416BP

PATIENT
  Sex: Female

DRUGS (4)
  1. SPIRIVA [Suspect]
     Indication: BRONCHITIS CHRONIC
     Route: 055
     Dates: start: 20070601
  2. ALBUTEROL [Concomitant]
  3. PROVENTIL [Concomitant]
  4. SEREVENT [Concomitant]
     Indication: DYSPNOEA

REACTIONS (1)
  - DRUG INEFFECTIVE [None]
